FAERS Safety Report 8946078 (Version 2)
Quarter: 2012Q4

REPORT INFORMATION
  Report Type: 
  Country: JP (occurrence: JP)
  Receive Date: 20121204
  Receipt Date: 20121218
  Transmission Date: 20130627
  Serious: Yes (Hospitalization)
  Sender: FDA-Public Use
  Company Number: JP-ELI_LILLY_AND_COMPANY-JP201209002897

PATIENT
  Age: 64 Year
  Sex: Female
  Weight: 50.5 kg

DRUGS (9)
  1. ZYPREXA [Suspect]
     Indication: BIPOLAR DISORDER
     Dosage: 5 mg, qd
     Route: 048
     Dates: start: 20120717, end: 20120730
  2. CYMBALTA [Suspect]
     Indication: DEPRESSIVE SYMPTOM
     Dosage: 60 mg, qd
     Route: 048
     Dates: start: 20120626, end: 20120730
  3. RILMAZAFONE [Concomitant]
     Indication: INSOMNIA
     Dosage: 2 mg, qd
     Route: 048
     Dates: start: 20071129, end: 20120731
  4. SENNOSIDE [Concomitant]
     Indication: CONSTIPATION
     Dosage: 36 mg, qd
     Route: 048
     Dates: start: 20090115
  5. U PAN [Concomitant]
     Indication: ANXIETY
     Dosage: 25 mg, bid
     Route: 048
     Dates: start: 20090115, end: 20120731
  6. LAMICTAL [Concomitant]
     Indication: BIPOLAR DISORDER
     Dosage: 25 mg, bid
     Route: 048
     Dates: start: 20120626, end: 20120806
  7. DESYREL [Concomitant]
     Dosage: 100 mg, UNK
     Dates: start: 20120731
  8. FLUNITRAZEPAM [Concomitant]
     Dosage: 2 mg, UNK
     Dates: start: 20120731
  9. SEPAZON [Concomitant]
     Dosage: 6 mg, UNK
     Dates: start: 20120731

REACTIONS (1)
  - Diabetic ketoacidosis [Recovered/Resolved]
